FAERS Safety Report 12790536 (Version 1)
Quarter: 2016Q3

REPORT INFORMATION
  Report Type: Spontaneous
  Country: US (occurrence: US)
  Receive Date: 20160929
  Receipt Date: 20160929
  Transmission Date: 20161109
  Serious: No
  Sender: FDA-Public Use
  Company Number: US-ACTELION-A-US2016-129749

PATIENT
  Age: 63 Year
  Sex: Female

DRUGS (1)
  1. VENTAVIS [Suspect]
     Active Substance: ILOPROST
     Indication: PULMONARY ARTERIAL HYPERTENSION
     Dosage: 5 MCG, 6-9 X/DAILY
     Route: 055
     Dates: start: 20110916

REACTIONS (6)
  - Dyspnoea [Unknown]
  - Fatigue [Unknown]
  - Fluid retention [Unknown]
  - Skin ulcer [Unknown]
  - Dyspnoea exertional [Unknown]
  - Cough [Unknown]
